FAERS Safety Report 7064714-X (Version None)
Quarter: 2010Q4

REPORT INFORMATION
  Report Type: 
  Country: None (occurrence: None)
  Receive Date: 20101027
  Receipt Date: 20101020
  Transmission Date: 20110411
  Serious: Yes (Other)
  Sender: FDA-Public Use
  Company Number: US-US-EMD SERONO, INC.-238115K09USA

PATIENT
  Sex: Male
  Weight: 99 kg

DRUGS (3)
  1. REBIF [Suspect]
     Indication: MULTIPLE SCLEROSIS
     Route: 058
     Dates: start: 20090608
  2. IBUPROFEN [Concomitant]
     Indication: PAIN
  3. BACLOFEN [Concomitant]
     Indication: MUSCLE SPASMS

REACTIONS (6)
  - ABDOMINAL DISTENSION [None]
  - HEPATIC ENZYME INCREASED [None]
  - INFLUENZA LIKE ILLNESS [None]
  - NECK MASS [None]
  - OCULAR ICTERUS [None]
  - YELLOW SKIN [None]
